FAERS Safety Report 20744586 (Version 1)
Quarter: 2022Q2

REPORT INFORMATION
  Report Type: Spontaneous
  Country: DE (occurrence: DE)
  Receive Date: 20220425
  Receipt Date: 20220425
  Transmission Date: 20220721
  Serious: Yes (Death, Life-Threatening, Hospitalization)
  Sender: FDA-Public Use
  Company Number: None

PATIENT
  Age: 65 Year
  Sex: Male

DRUGS (13)
  1. CYCLOSPORINE [Suspect]
     Active Substance: CYCLOSPORINE
     Indication: Graft versus host disease
     Route: 042
     Dates: start: 20211026, end: 20211128
  2. BUSULFEX [Suspect]
     Active Substance: BUSULFAN
     Indication: Surgical preconditioning
     Dosage: ON 24-OCT-2021 ONLY 123,93 MG
     Route: 042
     Dates: start: 20211022, end: 20211024
  3. FLUDARABINE [Suspect]
     Active Substance: FLUDARABINE PHOSPHATE
     Indication: Surgical preconditioning
     Route: 042
     Dates: start: 20211019, end: 20211024
  4. MYCOPHENOLATE MOFETIL [Suspect]
     Active Substance: MYCOPHENOLATE MOFETIL
     Indication: Graft versus host disease
     Route: 042
     Dates: start: 20211029, end: 20211209
  5. TACROLIMUS [Suspect]
     Active Substance: TACROLIMUS
     Indication: Product used for unknown indication
     Route: 048
     Dates: start: 20211203
  6. GRAFALON [Suspect]
     Active Substance: LAPINE T-LYMPHOCYTE IMMUNE GLOBULIN
     Indication: Allogenic stem cell transplantation
     Dosage: DAILY DOSES: 300, 900, 1000,?1500, 1500 MG; OTHER LOT NUMBERS M06F206, NF06C104, M06F206
     Route: 042
     Dates: start: 20211025, end: 20211025
  7. GRAFALON [Suspect]
     Active Substance: LAPINE T-LYMPHOCYTE IMMUNE GLOBULIN
     Indication: Allogenic stem cell transplantation
     Dosage: DAILY DOSES: 300, 900, 1000,?1500, 1500 MG; OTHER LOT NUMBERS NF06C104, MO6F204, M06F206
     Route: 042
     Dates: start: 20211024, end: 20211024
  8. GRAFALON [Suspect]
     Active Substance: LAPINE T-LYMPHOCYTE IMMUNE GLOBULIN
     Indication: Allogenic stem cell transplantation
     Dosage: DAILY DOSES: 300, 900, 1000,?1500, 1500 MG; OTHER LOT NUMBERS M06F206, MO6F204, NF06C104
     Route: 042
     Dates: start: 20211026, end: 20211027
  9. GRAFALON [Suspect]
     Active Substance: LAPINE T-LYMPHOCYTE IMMUNE GLOBULIN
     Indication: Allogenic stem cell transplantation
     Dosage: DAILY DOSES: 300, 900, 1000,?1500, 1500 MG; OTHER LOT NUMBERS M06F206, MO6F204, M06F206
     Route: 042
     Dates: start: 20211023, end: 20211023
  10. GRAFALON [Suspect]
     Active Substance: LAPINE T-LYMPHOCYTE IMMUNE GLOBULIN
     Indication: Graft versus host disease
     Dosage: DAILY DOSES: 300, 900, 1000,?1500, 1500 MG; OTHER LOT NUMBERS M06F206, NF06C104, M06F206
     Route: 042
     Dates: start: 20211025, end: 20211025
  11. GRAFALON [Suspect]
     Active Substance: LAPINE T-LYMPHOCYTE IMMUNE GLOBULIN
     Indication: Graft versus host disease
     Dosage: DAILY DOSES: 300, 900, 1000,?1500, 1500 MG; OTHER LOT NUMBERS M06F206, NF06C104, M06F206
     Route: 042
     Dates: start: 20211024, end: 20211024
  12. GRAFALON [Suspect]
     Active Substance: LAPINE T-LYMPHOCYTE IMMUNE GLOBULIN
     Indication: Graft versus host disease
     Dosage: DAILY DOSES: 300, 900, 1000,?1500, 1500 MG; OTHER LOT NUMBERS M06F206, NF06C104, M06F206
     Route: 042
     Dates: start: 20211026, end: 20211027
  13. GRAFALON [Suspect]
     Active Substance: LAPINE T-LYMPHOCYTE IMMUNE GLOBULIN
     Indication: Graft versus host disease
     Dosage: DAILY DOSES: 300, 900, 1000,?1500, 1500 MG; OTHER LOT NUMBERS M06F206, NF06C104, M06F206
     Route: 042
     Dates: start: 20211023, end: 20211023

REACTIONS (4)
  - Epstein-Barr virus infection reactivation [Recovered/Resolved]
  - Human herpesvirus 6 encephalitis [Recovered/Resolved]
  - Post transplant lymphoproliferative disorder [Fatal]
  - Colitis herpes [Unknown]

NARRATIVE: CASE EVENT DATE: 20211117
